FAERS Safety Report 16208582 (Version 1)
Quarter: 2019Q2

REPORT INFORMATION
  Report Type: Spontaneous
  Country: DE (occurrence: DE)
  Receive Date: 20190417
  Receipt Date: 20190417
  Transmission Date: 20190711
  Serious: Yes (Other)
  Sender: FDA-Public Use
  Company Number: DE-PFIZER INC-2019155321

PATIENT
  Age: 67 Year
  Sex: Male

DRUGS (1)
  1. TAFIL [Suspect]
     Active Substance: ALPRAZOLAM

REACTIONS (2)
  - Visual impairment [Unknown]
  - Cerebral atrophy [Unknown]
